FAERS Safety Report 5868808-3 (Version None)
Quarter: 2008Q3

REPORT INFORMATION
  Report Type: 
  Country: None (occurrence: None)
  Receive Date: 20080902
  Receipt Date: 20080902
  Transmission Date: 20090109
  Serious: Yes (Other)
  Sender: FDA-Public Use
  Company Number: None

PATIENT
  Age: 41 Year
  Sex: Female
  Weight: 68.0396 kg

DRUGS (1)
  1. AMBIEN [Suspect]

REACTIONS (3)
  - ABNORMAL SLEEP-RELATED EVENT [None]
  - AMNESIA [None]
  - SOMNAMBULISM [None]
